FAERS Safety Report 14338555 (Version 7)
Quarter: 2018Q4

REPORT INFORMATION
  Report Type: Report from Study
  Country: DE (occurrence: DE)
  Receive Date: 20171229
  Receipt Date: 20181019
  Transmission Date: 20190204
  Serious: Yes (Other)
  Sender: FDA-Public Use
  Company Number: PHHY2017DE195300

PATIENT
  Sex: Female
  Weight: 53 kg

DRUGS (2)
  1. KISQALI [Suspect]
     Active Substance: RIBOCICLIB
     Indication: BREAST CANCER METASTATIC
     Dosage: 600 MG, Q4W (D1-21)
     Route: 048
     Dates: start: 20171128
  2. LETROZOLE. [Suspect]
     Active Substance: LETROZOLE
     Indication: BREAST CANCER METASTATIC
     Dosage: 2.5 MG, QD
     Route: 048
     Dates: start: 20171128

REACTIONS (12)
  - Nasopharyngitis [Recovered/Resolved with Sequelae]
  - Dysgeusia [Recovered/Resolved]
  - Lacrimation increased [Recovered/Resolved]
  - Cystitis [Recovered/Resolved]
  - Libido decreased [Recovered/Resolved]
  - Polyneuropathy [Not Recovered/Not Resolved]
  - Bone pain [Recovered/Resolved]
  - Fatigue [Recovered/Resolved]
  - Alopecia [Not Recovered/Not Resolved]
  - Mucosal inflammation [Recovered/Resolved]
  - Mucosal inflammation [Recovered/Resolved]
  - Palmar-plantar erythrodysaesthesia syndrome [Not Recovered/Not Resolved]

NARRATIVE: CASE EVENT DATE: 20171201
